FAERS Safety Report 8616690-3 (Version None)
Quarter: 2012Q3

REPORT INFORMATION
  Report Type: 
  Country: None (occurrence: None)
  Receive Date: 20120823
  Receipt Date: 20120817
  Transmission Date: 20120928
  Serious: Yes (Hospitalization)
  Sender: FDA-Public Use
  Company Number: US-MERCK-1208USA007801

PATIENT

DRUGS (1)
  1. SAPHRIS [Suspect]
     Route: 060

REACTIONS (3)
  - PANIC ATTACK [None]
  - SWELLING [None]
  - ERYTHEMA [None]
